FAERS Safety Report 11387293 (Version 1)
Quarter: 2015Q3

REPORT INFORMATION
  Report Type: Spontaneous
  Country: CA (occurrence: CA)
  Receive Date: 20150817
  Receipt Date: 20150817
  Transmission Date: 20151125
  Serious: Yes (Hospitalization, Other)
  Sender: FDA-Public Use
  Company Number: CA-JNJFOC-20150807981

PATIENT

DRUGS (1)
  1. TYLENOL PM [Suspect]
     Active Substance: ACETAMINOPHEN\DIPHENHYDRAMINE
     Indication: PRODUCT USED FOR UNKNOWN INDICATION
     Route: 048
     Dates: start: 2009

REACTIONS (6)
  - Intentional overdose [Unknown]
  - Feeling abnormal [None]
  - Anxiety [Unknown]
  - Nervousness [Unknown]
  - Brain injury [None]
  - Suicide attempt [Unknown]

NARRATIVE: CASE EVENT DATE: 2009
